FAERS Safety Report 9754322 (Version 1)
Quarter: 2013Q4

REPORT INFORMATION
  Report Type: Report from Study
  Country: JP (occurrence: JP)
  Receive Date: 20131213
  Receipt Date: 20131213
  Transmission Date: 20140711
  Serious: Yes (Hospitalization)
  Sender: FDA-Public Use
  Company Number: JP-BRISTOL-MYERS SQUIBB COMPANY-19876416

PATIENT
  Age: 77 Year
  Sex: 0

DRUGS (20)
  1. PACLITAXEL [Suspect]
     Indication: BREAST CANCER METASTATIC
     Dosage: LAST DOSE:140 MG,RECENT DOSE:05-NOV-13
     Route: 042
     Dates: start: 20130910
  2. BLINDED: BEVACIZUMAB [Suspect]
     Indication: BREAST CANCER METASTATIC
     Dosage: MOST RECENT DOSE:05-NOV-13
     Route: 042
     Dates: start: 20130910
  3. BLINDED: PLACEBO [Suspect]
     Indication: BREAST CANCER METASTATIC
  4. GRANISETRON HCL [Concomitant]
     Indication: PREMEDICATION
     Dates: start: 20130910, end: 20131105
  5. DECADRON [Concomitant]
     Indication: PROPHYLAXIS OF NAUSEA AND VOMITING
     Dosage: 10SEP13-05NV13?11SEP13-07NV13
     Dates: start: 20130910
  6. ZANTAC [Concomitant]
     Indication: PREMEDICATION
     Dosage: 10SEP13-05NV13
     Dates: start: 20130910
  7. POLARAMINE [Concomitant]
     Indication: PREMEDICATION
     Dosage: 10SEP13-05NV13
     Dates: start: 20130910
  8. BENZETHONIUM CHLORIDE [Concomitant]
     Dosage: BENZETHONIUM CHLORIDE
     Dates: start: 20130910
  9. LEFTOSE [Concomitant]
     Indication: COUGH
     Dosage: 09JAN13-05NV13(301DAYS)
     Dates: start: 20130109
  10. SODIUM HYALURONATE [Concomitant]
     Indication: CATARACT
     Dosage: SODIUM HYALURONATE 0.3% SOL
     Route: 047
  11. KARY UNI [Concomitant]
     Indication: CATARACT
     Dosage: KARY UNI((0.005%)
     Route: 047
  12. SANCOBA [Concomitant]
     Indication: CATARACT
     Dosage: SANCOBA (0.02% SOL)
     Route: 047
  13. RINDERON-VG [Concomitant]
     Dates: start: 20130918
  14. TAKEPRON [Concomitant]
     Indication: HICCUPS
     Dates: start: 20130918
  15. GLYCYRON [Concomitant]
     Indication: LIVER DISORDER
     Dosage: 18SEP13-05NV13
     Dates: start: 20130918
  16. SENNOSIDE [Concomitant]
     Indication: CONSTIPATION
     Dosage: 12SEP13-31OCT13
     Dates: start: 20130912
  17. MOBIC [Concomitant]
     Indication: ARTHRALGIA
     Dates: start: 20131016
  18. LYRICA [Concomitant]
     Indication: NEUROPATHY PERIPHERAL
     Dates: start: 20131105
  19. VEEN-D [Concomitant]
     Dates: start: 20131112, end: 20131112
  20. PRIMPERAN [Concomitant]
     Dates: start: 20131112, end: 20131112

REACTIONS (1)
  - Muscular weakness [Not Recovered/Not Resolved]
